FAERS Safety Report 23702144 (Version 1)
Quarter: 2024Q2

REPORT INFORMATION
  Report Type: Spontaneous
  Country: PL (occurrence: PL)
  Receive Date: 20240403
  Receipt Date: 20240403
  Transmission Date: 20240716
  Serious: Yes (Other)
  Sender: FDA-Public Use
  Company Number: PL-SUN PHARMACEUTICAL INDUSTRIES LTD-2022RR-355633

PATIENT
  Age: 63 Year
  Sex: Female

DRUGS (3)
  1. CISPLATIN [Suspect]
     Active Substance: CISPLATIN
     Indication: Lung adenocarcinoma
     Dosage: UNK
     Route: 065
  2. PEMETREXED [Suspect]
     Active Substance: PEMETREXED
     Indication: Lung adenocarcinoma
     Dosage: UNK
     Route: 065
  3. PEMBROLIZUMAB [Suspect]
     Active Substance: PEMBROLIZUMAB
     Indication: Lung adenocarcinoma
     Dosage: 400 MG EVERY 6 WEEKS
     Route: 065

REACTIONS (6)
  - Anaemia [Unknown]
  - Therapeutic product effect incomplete [Unknown]
  - Hyperthyroidism [Recovered/Resolved]
  - Thyroid hormones decreased [Recovering/Resolving]
  - Vitiligo [Recovered/Resolved]
  - Product use in unapproved indication [Unknown]
